FAERS Safety Report 7404592-X (Version None)
Quarter: 2011Q2

REPORT INFORMATION
  Report Type: 
  Country: None (occurrence: None)
  Receive Date: 20110411
  Receipt Date: 20110330
  Transmission Date: 20111010
  Serious: Yes (Hospitalization)
  Sender: FDA-Public Use
  Company Number: US-BIOGENIDEC-2011BI009785

PATIENT
  Age: 51 Year
  Sex: Male

DRUGS (1)
  1. TYSABRI [Suspect]
     Indication: MULTIPLE SCLEROSIS
     Route: 042
     Dates: start: 20091221, end: 20110128

REACTIONS (8)
  - MALAISE [None]
  - INFECTION [None]
  - PYREXIA [None]
  - URINE ODOUR ABNORMAL [None]
  - ABASIA [None]
  - MUSCULAR WEAKNESS [None]
  - SUBSTANCE ABUSE [None]
  - CHILLS [None]
